FAERS Safety Report 5262752-0 (Version None)
Quarter: 2007Q1

REPORT INFORMATION
  Report Type: 
  Country: None (occurrence: None)
  Receive Date: 20070312
  Receipt Date: 20070308
  Transmission Date: 20070707
  Serious: Yes (Death, Life-Threatening, Disabling, Other)
  Sender: FDA-Public Use
  Company Number: US-GLAXOSMITHKLINE-A0640039A

PATIENT
  Sex: Female

DRUGS (4)
  1. LAMICTAL [Suspect]
     Indication: BIPOLAR DISORDER
     Dosage: 200MG UNKNOWN
     Route: 048
  2. UNSPECIFIED MEDICATIONS [Suspect]
  3. CYMBALTA [Concomitant]
  4. CONCURRENT MEDICATIONS [Concomitant]

REACTIONS (2)
  - DEATH [None]
  - DRUG ADMINISTRATION ERROR [None]
